FAERS Safety Report 4307320-X (Version None)
Quarter: 2004Q1

REPORT INFORMATION
  Report Type: 
  Country: None (occurrence: None)
  Receive Date: 20040226
  Receipt Date: 20030515
  Transmission Date: 20041129
  Serious: No
  Sender: FDA-Public Use
  Company Number: 200300530

PATIENT

DRUGS (1)
  1. CHILDREN'S MOTRIN [Suspect]
     Dosage: PO
     Route: 047

REACTIONS (3)
  - DEHYDRATION [None]
  - DYSPEPSIA [None]
  - VOMITING [None]
